FAERS Safety Report 5594047-X (Version None)
Quarter: 2008Q1

REPORT INFORMATION
  Report Type: 
  Country: None (occurrence: None)
  Receive Date: 20080114
  Receipt Date: 20071116
  Transmission Date: 20080703
  Serious: Yes (Hospitalization, Other)
  Sender: FDA-Public Use
  Company Number: 2007AL005008

PATIENT
  Age: 55 Year
  Sex: Female

DRUGS (6)
  1. CITALOPRAM HYDROBROMIDE [Suspect]
     Indication: DEPRESSION
     Dosage: 20 MG; QID; PO
     Route: 048
     Dates: start: 20050701, end: 20051201
  2. IMIPRAMINE [Concomitant]
  3. IMIPRAMINE [Concomitant]
  4. MIRTAZAPINE [Concomitant]
  5. LEVOTHYROXINE SODIUM [Concomitant]
  6. REMERON [Concomitant]

REACTIONS (6)
  - ANGLE CLOSURE GLAUCOMA [None]
  - ANXIETY [None]
  - HYPERTHYROIDISM [None]
  - MYDRIASIS [None]
  - PUPILLARY REFLEX IMPAIRED [None]
  - VISION BLURRED [None]
